FAERS Safety Report 6689349-X (Version None)
Quarter: 2010Q2

REPORT INFORMATION
  Report Type: 
  Country: None (occurrence: None)
  Receive Date: 20100419
  Receipt Date: 20100419
  Transmission Date: 20101027
  Serious: Yes (Life-Threatening, Disabling, Other)
  Sender: FDA-Public Use
  Company Number: None

PATIENT
  Age: 50 Year
  Sex: Female
  Weight: 66.6788 kg

DRUGS (2)
  1. HUMALOG [Suspect]
     Indication: DIABETES MELLITUS
     Dosage: 80 UNITS DAILY VIA PUMP SQ
     Route: 058
     Dates: start: 20100407, end: 20100408
  2. HUMALOG [Suspect]
     Indication: DIABETES MELLITUS
     Dosage: 80 UNITS DAILY VIA PUMP SQ
     Route: 058
     Dates: start: 20100415, end: 20100415

REACTIONS (4)
  - BLOOD GLUCOSE INCREASED [None]
  - INCORRECT PRODUCT STORAGE [None]
  - PRODUCT PACKAGING ISSUE [None]
  - URINE KETONE BODY PRESENT [None]
